FAERS Safety Report 25356533 (Version 1)
Quarter: 2025Q2

REPORT INFORMATION
  Report Type: Spontaneous
  Country: US (occurrence: US)
  Receive Date: 20250526
  Receipt Date: 20250526
  Transmission Date: 20250717
  Serious: No
  Sender: TEVA
  Company Number: US-TEVA-VS-3333949

PATIENT
  Age: 5 Year
  Sex: Male

DRUGS (7)
  1. PREDNISOLONE [Suspect]
     Active Substance: PREDNISOLONE
     Indication: Still^s disease
     Route: 065
  2. JAKAFI [Suspect]
     Active Substance: RUXOLITINIB
     Indication: Still^s disease
     Route: 065
  3. METHOTREXATE [Suspect]
     Active Substance: METHOTREXATE
     Indication: Still^s disease
     Route: 065
  4. CYCLOSPORINE [Suspect]
     Active Substance: CYCLOSPORINE
     Indication: Still^s disease
     Route: 065
  5. ILARIS [Suspect]
     Active Substance: CANAKINUMAB
     Indication: Still^s disease
     Route: 065
  6. TOCILIZUMAB [Suspect]
     Active Substance: TOCILIZUMAB
     Indication: Still^s disease
     Route: 065
  7. ANAKINRA [Suspect]
     Active Substance: ANAKINRA
     Indication: Still^s disease
     Route: 065

REACTIONS (2)
  - Multiple-drug resistance [Unknown]
  - Interleukin level increased [Unknown]
